FAERS Safety Report 5848369-5 (Version None)
Quarter: 2008Q3

REPORT INFORMATION
  Report Type: 
  Country: None (occurrence: None)
  Receive Date: 20080814
  Receipt Date: 20080729
  Transmission Date: 20090109
  Serious: Yes (Hospitalization, Other)
  Sender: FDA-Public Use
  Company Number: 002#8#2008-00620

PATIENT
  Age: 78 Year
  Sex: Female

DRUGS (13)
  1. OMEPRAZOLE [Suspect]
     Indication: DRUG USE FOR UNKNOWN INDICATION
  2. SPIRONOLACTONE [Concomitant]
  3. BUMETANIDE [Concomitant]
  4. FUROSEMIDE [Concomitant]
  5. GABAPENTIN [Concomitant]
  6. CO-CODAMOL [Concomitant]
  7. HYOSCINE HBR HYT [Concomitant]
  8. NITROGLYCERIN [Concomitant]
  9. LOSARTAN POTASSIUM [Concomitant]
  10. ASPIRIN [Concomitant]
  11. ATORVASTATIN [Concomitant]
  12. IPRATROPIUM BROMIDE [Concomitant]
  13. SALMETEROL [Concomitant]

REACTIONS (10)
  - AGITATION [None]
  - CHRONIC OBSTRUCTIVE PULMONARY DISEASE [None]
  - DIARRHOEA [None]
  - HALLUCINATION [None]
  - HYPOCALCAEMIA [None]
  - HYPOKALAEMIA [None]
  - HYPOMAGNESAEMIA [None]
  - HYPOPHOSPHATAEMIA [None]
  - NO THERAPEUTIC RESPONSE [None]
  - VOMITING [None]
